FAERS Safety Report 23446637 (Version 2)
Quarter: 2024Q1

REPORT INFORMATION
  Report Type: Spontaneous
  Country: US (occurrence: US)
  Receive Date: 20240126
  Receipt Date: 20240321
  Transmission Date: 20240410
  Serious: No
  Sender: FDA-Public Use
  Company Number: US-PFIZER INC-PV202200089873

PATIENT
  Age: 93 Year
  Sex: Female

DRUGS (6)
  1. IBRANCE [Suspect]
     Active Substance: PALBOCICLIB
     Dosage: 75 MG ONCE DAILY FOR 14 DAYS THEN STOP FOR 14 DAYS, REPEAT
     Route: 048
     Dates: start: 20210518
  2. IBRANCE [Suspect]
     Active Substance: PALBOCICLIB
     Dosage: 75 MG ONCE DAILY FOR 14 DAYS THEN STOP FOR 14 DAYS, REPEAT
     Route: 048
     Dates: start: 20210913
  3. IBRANCE [Suspect]
     Active Substance: PALBOCICLIB
     Dosage: 75 MG ONCE DAILY FOR 14 DAYS THEN STOP FOR 14 DAYS, REPEAT
     Route: 048
     Dates: start: 20220318
  4. IBRANCE [Suspect]
     Active Substance: PALBOCICLIB
     Dosage: 75 MG ONCE DAILY FOR 14 DAYS THEN STOP FOR 14 DAYS, REPEAT
     Route: 048
     Dates: start: 20220527
  5. IBRANCE [Suspect]
     Active Substance: PALBOCICLIB
     Dosage: 75 MG ONCE DAILY FOR 14 DAYS THEN STOP FOR 14 DAYS, REPEAT
     Route: 048
     Dates: start: 20220825
  6. IBRANCE [Suspect]
     Active Substance: PALBOCICLIB
     Dosage: 75 MG ONCE DAILY FOR 14 DAYS THEN STOP FOR 14 DAYS, REPEAT
     Route: 048
     Dates: start: 20220826

REACTIONS (3)
  - Headache [Unknown]
  - Off label use [Unknown]
  - Product use issue [Unknown]

NARRATIVE: CASE EVENT DATE: 20210518
